FAERS Safety Report 19685024 (Version 1)
Quarter: 2021Q3

REPORT INFORMATION
  Report Type: Report from Study
  Country: CA (occurrence: CA)
  Receive Date: 20210811
  Receipt Date: 20210811
  Transmission Date: 20211014
  Serious: Yes (Hospitalization, Other)
  Sender: FDA-Public Use
  Company Number: CA-ACCORD-235126

PATIENT
  Age: 65 Year
  Sex: Female

DRUGS (19)
  1. ACTEMRA [Suspect]
     Active Substance: TOCILIZUMAB
     Indication: RHEUMATOID ARTHRITIS
     Dosage: 1 EVERY 4 WEEKS
     Route: 042
  2. RISEDRONIC ACID [Concomitant]
     Active Substance: RISEDRONIC ACID
  3. CYMBALTA [Concomitant]
     Active Substance: DULOXETINE HYDROCHLORIDE
  4. INSULIN [Concomitant]
     Active Substance: INSULIN NOS
     Dosage: GLOBULES
     Route: 048
  5. METHOTREXATE. [Concomitant]
     Active Substance: METHOTREXATE
     Route: 058
  6. PREDNISONE. [Concomitant]
     Active Substance: PREDNISONE
  7. RABEPRAZOLE/RABEPRAZOLE SODIUM [Concomitant]
     Active Substance: RABEPRAZOLE SODIUM
  8. ACTEMRA [Suspect]
     Active Substance: TOCILIZUMAB
     Indication: RHEUMATOID ARTHRITIS
     Dosage: 1 EVERY 3 WEEKS
     Route: 042
  9. ESCITALOPRAM [Suspect]
     Active Substance: ESCITALOPRAM OXALATE
     Indication: PRODUCT USED FOR UNKNOWN INDICATION
     Route: 065
  10. METFORMIN [Concomitant]
     Active Substance: METFORMIN HYDROCHLORIDE
     Route: 065
  11. ACTEMRA [Suspect]
     Active Substance: TOCILIZUMAB
     Indication: RHEUMATOID ARTHRITIS
     Dosage: 1 EVERY 4 WEEKS
     Route: 042
  12. AMITRIPTYLINE [Suspect]
     Active Substance: AMITRIPTYLINE
     Indication: PRODUCT USED FOR UNKNOWN INDICATION
     Route: 065
  13. PROCHLORPERAZINE. [Concomitant]
     Active Substance: PROCHLORPERAZINE
  14. CALCIUM CITRATE [Concomitant]
     Active Substance: CALCIUM CITRATE
  15. CHLORTALIDONE [Concomitant]
     Active Substance: CHLORTHALIDONE
  16. CURCUMA LONGA [Concomitant]
     Active Substance: HERBALS\TURMERIC
  17. ACTEMRA [Suspect]
     Active Substance: TOCILIZUMAB
     Indication: RHEUMATOID ARTHRITIS
     Dosage: 1 EVERY 3 WEEKS
     Route: 042
  18. LEUCOVORIN. [Concomitant]
     Active Substance: LEUCOVORIN
  19. CAPSAICIN. [Concomitant]
     Active Substance: CAPSAICIN

REACTIONS (15)
  - Neck pain [Unknown]
  - Spinal disorder [Unknown]
  - Spinal osteoarthritis [Unknown]
  - Synovitis [Unknown]
  - Feeling abnormal [Unknown]
  - Thrombocytopenia [Unknown]
  - Hypersensitivity [Unknown]
  - Bone density decreased [Unknown]
  - Intervertebral disc protrusion [Unknown]
  - Somnolence [Unknown]
  - Allergy to arthropod sting [Unknown]
  - Drug hypersensitivity [Unknown]
  - Bone erosion [Unknown]
  - Carpal tunnel syndrome [Unknown]
  - Radiculopathy [Unknown]
